FAERS Safety Report 4426053-2 (Version None)
Quarter: 2004Q3

REPORT INFORMATION
  Report Type: 
  Country: None (occurrence: None)
  Receive Date: 20040811
  Receipt Date: 20040729
  Transmission Date: 20050211
  Serious: No
  Sender: FDA-Public Use
  Company Number: 2004PK01302

PATIENT
  Age: 69 Year
  Sex: Female
  Weight: 58 kg

DRUGS (2)
  1. ACERCOMP [Suspect]
     Indication: HYPERTENSION
     Dosage: 1 DF DAILY PO
     Route: 048
     Dates: start: 19990101, end: 20040501
  2. ASPEGIC 325 [Concomitant]

REACTIONS (3)
  - BENIGN LARYNGEAL NEOPLASM [None]
  - MUCOSAL INFLAMMATION [None]
  - POST PROCEDURAL COMPLICATION [None]
